FAERS Safety Report 23899222 (Version 1)
Quarter: 2024Q2

REPORT INFORMATION
  Report Type: Spontaneous
  Country: US (occurrence: US)
  Receive Date: 20240526
  Receipt Date: 20240526
  Transmission Date: 20240716
  Serious: No
  Sender: FDA-Public Use
  Company Number: US-SA-SAC20240521001111

PATIENT
  Age: 61 Year
  Sex: Male

DRUGS (2)
  1. KEVZARA [Suspect]
     Active Substance: SARILUMAB
     Indication: Juvenile psoriatic arthritis
     Dosage: 200 MG, QOW
     Route: 058
  2. KEVZARA [Suspect]
     Active Substance: SARILUMAB
     Indication: Polyarthritis

REACTIONS (2)
  - Hypersensitivity [Unknown]
  - Product use in unapproved indication [Unknown]
